FAERS Safety Report 13153122 (Version 4)
Quarter: 2019Q4

REPORT INFORMATION
  Report Type: Spontaneous
  Country: US (occurrence: US)
  Receive Date: 20170126
  Receipt Date: 20191003
  Transmission Date: 20200122
  Serious: Yes (Death, Hospitalization, Other)
  Sender: FDA-Public Use
  Company Number: US-ASTRAZENECA-2017SE06078

PATIENT
  Age: 29185 Day
  Sex: Female
  Weight: 67.6 kg

DRUGS (17)
  1. AMLODIPINE BESYLATE. [Concomitant]
     Active Substance: AMLODIPINE BESYLATE
     Dosage: 10.0MG UNKNOWN
     Dates: start: 20130110
  2. TRAMADOL HYDROCHLORIDE. [Concomitant]
     Active Substance: TRAMADOL HYDROCHLORIDE
  3. TORSEMIDE. [Concomitant]
     Active Substance: TORSEMIDE
  4. ONGLYZA [Suspect]
     Active Substance: SAXAGLIPTIN HYDROCHLORIDE
     Indication: TYPE 2 DIABETES MELLITUS
     Route: 048
     Dates: start: 20130301
  5. TOLTERODINE [Concomitant]
     Active Substance: TOLTERODINE
     Dosage: 2.0MG UNKNOWN
     Dates: start: 20170106
  6. LUMIGAN [Concomitant]
     Active Substance: BIMATOPROST
  7. LABETALOL [Concomitant]
     Active Substance: LABETALOL\LABETALOL HYDROCHLORIDE
  8. ONGLYZA [Suspect]
     Active Substance: SAXAGLIPTIN HYDROCHLORIDE
     Indication: TYPE 2 DIABETES MELLITUS
     Route: 048
     Dates: start: 2012, end: 2015
  9. CARVEDILOL. [Concomitant]
     Active Substance: CARVEDILOL
     Dosage: 25.0MG UNKNOWN
     Dates: start: 20130129
  10. LIPITOR [Concomitant]
     Active Substance: ATORVASTATIN CALCIUM
     Dates: start: 20170119
  11. KOMBIGLYZE XR [Suspect]
     Active Substance: METFORMIN HYDROCHLORIDE\SAXAGLIPTIN HYDROCHLORIDE
     Indication: TYPE 2 DIABETES MELLITUS
     Route: 048
  12. HYDROCODONE [Concomitant]
     Active Substance: HYDROCODONE
  13. ONGLYZA [Suspect]
     Active Substance: SAXAGLIPTIN HYDROCHLORIDE
     Indication: TYPE 2 DIABETES MELLITUS
     Route: 048
     Dates: start: 20130301, end: 20170119
  14. SPIRONOIACTONE [Concomitant]
     Dosage: 25.0MG UNKNOWN
     Dates: start: 20150508
  15. FUROSEMIDE. [Concomitant]
     Active Substance: FUROSEMIDE
     Dosage: 20.0MG UNKNOWN
     Dates: start: 20130110
  16. SIMVASTATIN. [Concomitant]
     Active Substance: SIMVASTATIN
     Dosage: 40.0MG UNKNOWN
     Dates: start: 20130129
  17. HYDRALAZINE [Concomitant]
     Active Substance: HYDRALAZINE HYDROCHLORIDE

REACTIONS (4)
  - Cardiac failure [Unknown]
  - Cardiovascular disorder [Unknown]
  - Cardiac failure congestive [Unknown]
  - Cardiac arrest [Unknown]

NARRATIVE: CASE EVENT DATE: 20170119
